FAERS Safety Report 4289667-9 (Version None)
Quarter: 2004Q1

REPORT INFORMATION
  Report Type: 
  Country: None (occurrence: None)
  Receive Date: 20040126
  Receipt Date: 20030114
  Transmission Date: 20041129
  Serious: Yes (Disabling)
  Sender: FDA-Public Use
  Company Number: 02P-163-0205512-00

PATIENT
  Age: 34 Year
  Sex: Female

DRUGS (4)
  1. VICODIN ES [Suspect]
     Indication: NEUROPATHIC PAIN
     Dosage: PER ORAL
     Route: 048
  2. MORPHINE SULFATE [Concomitant]
  3. GABAPENTIN [Concomitant]
  4. NORTRIPTYLINE HCL [Concomitant]

REACTIONS (2)
  - DEAFNESS [None]
  - DRUG ABUSER [None]
